FAERS Safety Report 6238765-9 (Version None)
Quarter: 2009Q2

REPORT INFORMATION
  Report Type: 
  Country: None (occurrence: None)
  Receive Date: 20090617
  Receipt Date: 20090617
  Transmission Date: 20091009
  Serious: Yes (Other)
  Sender: FDA-Public Use
  Company Number: None

PATIENT
  Age: 51 Year
  Sex: Male
  Weight: 99.7913 kg

DRUGS (2)
  1. -ZICAM- ZIACAM SPRAY [Suspect]
     Indication: NASOPHARYNGITIS
     Dates: start: 20080203, end: 20090203
  2. ZICAM GEL SWABS [Suspect]

REACTIONS (1)
  - ANOSMIA [None]
